FAERS Safety Report 8159137-6 (Version None)
Quarter: 2012Q1

REPORT INFORMATION
  Report Type: 
  Country: None (occurrence: None)
  Receive Date: 20120223
  Receipt Date: 20120220
  Transmission Date: 20120608
  Serious: Yes (Hospitalization, Other)
  Sender: FDA-Public Use
  Company Number: US-TEVA-323540USA

PATIENT
  Sex: Female
  Weight: 59.02 kg

DRUGS (2)
  1. PROVIGIL [Suspect]
     Indication: PARKINSON'S DISEASE
  2. PROVIGIL [Suspect]
     Indication: BIPOLAR DISORDER
     Route: 048
     Dates: start: 20110501, end: 20120210

REACTIONS (3)
  - PULMONARY EMBOLISM [None]
  - OFF LABEL USE [None]
  - DYSPNOEA [None]
